FAERS Safety Report 15114966 (Version 1)
Quarter: 2018Q3

REPORT INFORMATION
  Report Type: Spontaneous
  Country: DE (occurrence: DE)
  Receive Date: 20180706
  Receipt Date: 20180706
  Transmission Date: 20181010
  Serious: Yes (Hospitalization, Other)
  Sender: FDA-Public Use
  Company Number: DE-BAYER-2018-125192

PATIENT
  Age: 43 Year
  Sex: Female

DRUGS (1)
  1. CIPROFLOXACIN. [Suspect]
     Active Substance: CIPROFLOXACIN
     Indication: DIVERTICULITIS
     Dosage: UNK
     Dates: start: 20171030

REACTIONS (19)
  - Lung disorder [None]
  - Renal function test abnormal [None]
  - Mitochondrial cytopathy [None]
  - Circulatory collapse [None]
  - Dyspnoea [None]
  - Metabolic disorder [None]
  - Gastrointestinal disorder [None]
  - Tongue paralysis [None]
  - Cardiovascular symptom [None]
  - Seizure [None]
  - Neurological symptom [None]
  - Hallucination [None]
  - Tremor [None]
  - Muscle disorder [None]
  - Rheumatic disorder [None]
  - Hormone level abnormal [None]
  - Panic attack [None]
  - Nightmare [None]
  - Liver function test abnormal [None]

NARRATIVE: CASE EVENT DATE: 201711
